FAERS Safety Report 7739936-2 (Version None)
Quarter: 2011Q3

REPORT INFORMATION
  Report Type: 
  Country: None (occurrence: None)
  Receive Date: 20110909
  Receipt Date: 20110907
  Transmission Date: 20111222
  Serious: Yes (Death)
  Sender: FDA-Public Use
  Company Number: PHHY2011CO79729

PATIENT
  Sex: Female

DRUGS (3)
  1. INTERFERON [Concomitant]
  2. AMLODIPINE [Concomitant]
  3. SANDOSTATIN LAR [Suspect]
     Indication: NEUROENDOCRINE TUMOUR
     Dosage: 1MG EACH 8 HOURS (20 MG)
     Route: 030
     Dates: start: 20091101, end: 20101101

REACTIONS (8)
  - GASTROINTESTINAL NECROSIS [None]
  - CARDIO-RESPIRATORY ARREST [None]
  - METASTASES TO BREAST [None]
  - PULMONARY OEDEMA [None]
  - METASTASES TO LIVER [None]
  - METASTASES TO OVARY [None]
  - INTESTINAL OBSTRUCTION [None]
  - NEOPLASM MALIGNANT [None]
